FAERS Safety Report 16115150 (Version 1)
Quarter: 2019Q1

REPORT INFORMATION
  Report Type: Spontaneous
  Country: FR (occurrence: FR)
  Receive Date: 20190325
  Receipt Date: 20190325
  Transmission Date: 20190418
  Serious: Yes (Hospitalization)
  Sender: FDA-Public Use
  Company Number: FR-PFIZER INC-2019123904

PATIENT
  Sex: Male
  Weight: 80 kg

DRUGS (4)
  1. IMOVANE [Suspect]
     Active Substance: ZOPICLONE
     Indication: DRUG USE DISORDER
     Dosage: 2 DF, 1X/DAY
     Route: 048
     Dates: start: 1998
  2. XANAX [Suspect]
     Active Substance: ALPRAZOLAM
     Indication: DRUG USE DISORDER
     Dosage: 10 DF (AS NECESSARY)
     Route: 048
     Dates: start: 1998, end: 2011
  3. SERESTA [Suspect]
     Active Substance: OXAZEPAM
     Indication: DRUG USE DISORDER
     Dosage: 500 MG (AS NECESSARY)
     Route: 048
     Dates: start: 2011
  4. PAROXETINE HYDROCHLORIDE. [Concomitant]
     Active Substance: PAROXETINE HYDROCHLORIDE

REACTIONS (2)
  - Condition aggravated [Not Recovered/Not Resolved]
  - Drug use disorder [Not Recovered/Not Resolved]

NARRATIVE: CASE EVENT DATE: 2006
